FAERS Safety Report 13347683 (Version 14)
Quarter: 2019Q1

REPORT INFORMATION
  Report Type: Report from Study
  Country: US (occurrence: US)
  Receive Date: 20170317
  Receipt Date: 20190325
  Transmission Date: 20190417
  Serious: Yes (Hospitalization, Other)
  Sender: FDA-Public Use
  Company Number: US-ACTELION-A-US2017-149678

PATIENT
  Age: 50 Year
  Sex: Female
  Weight: 87.98 kg

DRUGS (12)
  1. OPSUMIT [Suspect]
     Active Substance: MACITENTAN
     Indication: PULMONARY HYPERTENSION
     Dosage: 10 MG, QD
     Route: 048
     Dates: start: 20150314
  2. ADEMPAS [Concomitant]
     Active Substance: RIOCIGUAT
  3. WARFARIN SODIUM. [Concomitant]
     Active Substance: WARFARIN SODIUM
  4. PROSTACYCLIN [Concomitant]
     Active Substance: EPOPROSTENOL
  5. METFORMIN [Concomitant]
     Active Substance: METFORMIN HYDROCHLORIDE
  6. ASPIRIN. [Concomitant]
     Active Substance: ASPIRIN
  7. REMODULIN [Concomitant]
     Active Substance: TREPROSTINIL
  8. OXYGEN. [Concomitant]
     Active Substance: OXYGEN
     Dosage: 3 L, UNK
     Dates: start: 20171213
  9. ATORVASTATIN [Concomitant]
     Active Substance: ATORVASTATIN
  10. DIGOXIN. [Concomitant]
     Active Substance: DIGOXIN
  11. LASIX [Concomitant]
     Active Substance: FUROSEMIDE
  12. METOPROLOL SUCCINATE. [Concomitant]
     Active Substance: METOPROLOL SUCCINATE

REACTIONS (30)
  - Diabetes mellitus [Unknown]
  - Dizziness [Unknown]
  - Cardiac failure [Unknown]
  - Heart rate irregular [Unknown]
  - Catheter site swelling [Unknown]
  - Catheter site pain [Unknown]
  - Headache [Unknown]
  - Palpitations [Not Recovered/Not Resolved]
  - Arrhythmia [Unknown]
  - Hypotension [Unknown]
  - Neuropathy peripheral [Unknown]
  - Dizziness postural [Unknown]
  - Blood pressure systolic increased [Unknown]
  - Catheter site haemorrhage [Recovered/Resolved]
  - Dyspnoea exertional [Unknown]
  - Vision blurred [Unknown]
  - Pulmonary hypertension [Unknown]
  - Pulmonary arterial pressure increased [Unknown]
  - Hypoxia [Unknown]
  - Cardiac flutter [Unknown]
  - Diarrhoea [Unknown]
  - Right ventricular failure [Unknown]
  - Oxygen saturation decreased [Unknown]
  - Chest pain [Unknown]
  - Device alarm issue [Unknown]
  - Catheter site inflammation [Unknown]
  - Dyspnoea [Unknown]
  - Infusion site erythema [Unknown]
  - Pain in extremity [Unknown]
  - Catheter site erythema [Unknown]

NARRATIVE: CASE EVENT DATE: 20150513
